FAERS Safety Report 13926861 (Version 3)
Quarter: 2017Q3

REPORT INFORMATION
  Report Type: Spontaneous
  Country: US (occurrence: US)
  Receive Date: 20170831
  Receipt Date: 20170921
  Transmission Date: 20171127
  Serious: Yes (Other)
  Sender: FDA-Public Use
  Company Number: US-BRISTOL-MYERS SQUIBB COMPANY-BMS-2017-076608

PATIENT
  Age: 75 Year
  Sex: Female
  Weight: 74.83 kg

DRUGS (2)
  1. SIMVASTATIN. [Concomitant]
     Active Substance: SIMVASTATIN
     Indication: PRODUCT USED FOR UNKNOWN INDICATION
     Route: 065
  2. ELIQUIS [Suspect]
     Active Substance: APIXABAN
     Indication: DEEP VEIN THROMBOSIS
     Dosage: 5 MG, BID
     Route: 048

REACTIONS (9)
  - Fall [Unknown]
  - Upper limb fracture [Unknown]
  - Pelvic fracture [Unknown]
  - Constipation [Not Recovered/Not Resolved]
  - Prescribed underdose [Unknown]
  - Injury [Unknown]
  - Skin discolouration [Unknown]
  - Thrombosis [Unknown]
  - Alopecia [Unknown]

NARRATIVE: CASE EVENT DATE: 20170403
